FAERS Safety Report 8840467 (Version 1)
Quarter: 2012Q4

REPORT INFORMATION
  Report Type: 
  Country: US (occurrence: US)
  Receive Date: 20121015
  Receipt Date: 20121015
  Transmission Date: 20130627
  Serious: Yes (Hospitalization, Other)
  Sender: FDA-Public Use
  Company Number: US-ELI_LILLY_AND_COMPANY-US200910007922

PATIENT
  Age: 52 Year
  Sex: Male
  Weight: 106.58 kg

DRUGS (8)
  1. ZYPREXA [Suspect]
     Indication: SCHIZOPHRENIA
     Dosage: 10 mg, each evening
     Route: 048
     Dates: start: 1999
  2. ZYPREXA [Suspect]
     Dosage: 15 mg, each evening
     Route: 048
     Dates: end: 20021116
  3. PROZAC [Concomitant]
  4. PAXIL [Concomitant]
  5. RISPERDAL [Concomitant]
  6. ZOLOFT [Concomitant]
  7. THORAZINE [Concomitant]
  8. SEROQUEL [Concomitant]

REACTIONS (20)
  - Upper gastrointestinal haemorrhage [Unknown]
  - Gastric ulcer [Unknown]
  - Gastric cancer [Unknown]
  - Syncope [Unknown]
  - Sinus tachycardia [Unknown]
  - Wolff-Parkinson-White syndrome [Unknown]
  - Bacteraemia [Unknown]
  - Hepatitis viral [Unknown]
  - Orthostatic hypotension [Unknown]
  - Type 2 diabetes mellitus [Unknown]
  - Nightmare [Unknown]
  - Sedation [Unknown]
  - Gastrooesophageal reflux disease [Unknown]
  - Hypovolaemia [Unknown]
  - Chest pain [Unknown]
  - Vision blurred [Unknown]
  - Gastritis [Unknown]
  - Onychomycosis [Unknown]
  - Dyslipidaemia [Unknown]
  - Weight increased [Unknown]
